FAERS Safety Report 8092198-1 (Version None)
Quarter: 2012Q1

REPORT INFORMATION
  Report Type: 
  Country: None (occurrence: None)
  Receive Date: 20120129
  Receipt Date: 20111122
  Transmission Date: 20120608
  Serious: No
  Sender: FDA-Public Use
  Company Number: US-ABBOTT-11P-163-0876673-00

PATIENT
  Sex: Female
  Weight: 90.8 kg

DRUGS (2)
  1. HUMIRA [Suspect]
     Indication: PSORIATIC ARTHROPATHY
     Dates: start: 20101101
  2. HUMIRA [Suspect]
     Indication: PSORIASIS

REACTIONS (3)
  - LYMPHOEDEMA [None]
  - BLOOD CHOLESTEROL INCREASED [None]
  - CYSTITIS [None]
